FAERS Safety Report 5530076-X (Version None)
Quarter: 2007Q4

REPORT INFORMATION
  Report Type: 
  Country: None (occurrence: None)
  Receive Date: 20071119
  Receipt Date: 20070802
  Transmission Date: 20080405
  Serious: No
  Sender: FDA-Public Use
  Company Number: TPA2007A01438

PATIENT
  Age: 53 Year
  Sex: Female
  Weight: 93.8946 kg

DRUGS (7)
  1. ROZEREM [Suspect]
     Indication: INSOMNIA
     Dosage: 8 MG, HS, PER ORAL
     Route: 048
     Dates: start: 20070611, end: 20070704
  2. TYLENOL 3 (CODEINE PHOSPHATE, PARACETAMOL) [Concomitant]
  3. DILTIAZEM [Concomitant]
  4. NEXIUM [Concomitant]
  5. EFFEXOR XR [Concomitant]
  6. DYAZIDE [Concomitant]
  7. SYNTHROID [Concomitant]

REACTIONS (1)
  - NIGHTMARE [None]
